FAERS Safety Report 24899256 (Version 2)
Quarter: 2025Q1

REPORT INFORMATION
  Report Type: Spontaneous
  Country: US (occurrence: US)
  Receive Date: 20250129
  Receipt Date: 20250216
  Transmission Date: 20250408
  Serious: Yes (Life-Threatening, Hospitalization)
  Sender: UCB
  Company Number: US-MLMSERVICE-20250123-PI373444-00196-2

PATIENT
  Age: 3 Decade
  Sex: Male

DRUGS (2)
  1. LEVETIRACETAM [Suspect]
     Active Substance: LEVETIRACETAM
     Indication: Seizure
  2. CARBAMAZEPINE [Suspect]
     Active Substance: CARBAMAZEPINE
     Indication: Seizure

REACTIONS (3)
  - Drug reaction with eosinophilia and systemic symptoms [Recovered/Resolved]
  - Liver injury [Recovered/Resolved]
  - Acute respiratory failure [Recovered/Resolved]
